FAERS Safety Report 25940106 (Version 1)
Quarter: 2025Q4

REPORT INFORMATION
  Report Type: Spontaneous
  Country: EU (occurrence: EU)
  Receive Date: 20251020
  Receipt Date: 20251020
  Transmission Date: 20260117
  Serious: Yes (Death, Hospitalization, Other)
  Sender: BRISTOL-MYERS SQUIBB COMPANY
  Company Number: None

PATIENT
  Age: 73 Year
  Sex: Male

DRUGS (21)
  1. NIVOLUMAB [Suspect]
     Active Substance: NIVOLUMAB
     Indication: Clear cell renal cell carcinoma
     Dates: start: 20220729, end: 20221005
  2. NIVOLUMAB [Suspect]
     Active Substance: NIVOLUMAB
     Dates: start: 20221027, end: 20221222
  3. NIVOLUMAB [Suspect]
     Active Substance: NIVOLUMAB
     Dates: start: 20230120, end: 20230317
  4. NIVOLUMAB [Suspect]
     Active Substance: NIVOLUMAB
     Dates: start: 20230417, end: 20250415
  5. PREDNISONE [4]
     Active Substance: PREDNISONE
     Indication: Immune-mediated lung disease
     Dates: end: 20250915
  6. AXITINIB [Concomitant]
     Active Substance: AXITINIB
     Indication: Clear cell renal cell carcinoma
     Dosage: 3MG MORNING AND EVENING
     Dates: start: 20250911, end: 20250914
  7. ELIQUIS [Concomitant]
     Active Substance: APIXABAN
     Indication: Atrial fibrillation
     Dosage: 2.5MG MORNING AND EVENING
  8. DIGOXINE ARROW [Concomitant]
     Indication: Atrial fibrillation
     Dates: end: 20250916
  9. DAPAGLIFLOZIN [Concomitant]
     Active Substance: DAPAGLIFLOZIN
     Indication: Cardiac failure
  10. FUROSEMIDE [Concomitant]
     Active Substance: FUROSEMIDE
     Indication: Cardiac failure
  11. IRBESARTAN [Concomitant]
     Active Substance: IRBESARTAN
     Indication: Cardiac failure
  12. IRBESARTAN [Concomitant]
     Active Substance: IRBESARTAN
     Indication: Hypertension
  13. NEBIVOLOL [Concomitant]
     Active Substance: NEBIVOLOL
     Indication: Cardiac failure
  14. NEBIVOLOL [Concomitant]
     Active Substance: NEBIVOLOL
     Indication: Hypertension
  15. EPLERENONE [Concomitant]
     Active Substance: EPLERENONE
     Indication: Cardiac failure
  16. EPLERENONE [Concomitant]
     Active Substance: EPLERENONE
     Indication: Hypertension
  17. EZETIMIBE\ROSUVASTATIN [Concomitant]
     Active Substance: EZETIMIBE\ROSUVASTATIN
     Indication: Dyslipidaemia
     Dosage: 10MG EZETIMIBE AND 10MG ROSUVASTATIN
  18. METFORMIN HYDROCHLORIDE [Concomitant]
     Active Substance: METFORMIN HYDROCHLORIDE
     Indication: Diabetes mellitus
     Dosage: 500MG MORNING AND EVENING
  19. LANTUS [Concomitant]
     Active Substance: INSULIN GLARGINE
     Indication: Diabetes mellitus
  20. HYDROCORTISONE [Concomitant]
     Active Substance: HYDROCORTISONE
     Indication: Immune-mediated adrenal insufficiency
     Dosage: 20MG MORNING AND 10MG NOON
  21. ALPRAZOLAM [Concomitant]
     Active Substance: ALPRAZOLAM
     Indication: Anxiety

REACTIONS (2)
  - Immune-mediated hepatitis [Fatal]
  - Immune-mediated lung disease [Recovered/Resolved]

NARRATIVE: CASE EVENT DATE: 20250520
